FAERS Safety Report 5932768-7 (Version None)
Quarter: 2008Q4

REPORT INFORMATION
  Report Type: 
  Country: None (occurrence: None)
  Receive Date: 20081028
  Receipt Date: 20081023
  Transmission Date: 20090506
  Serious: Yes (Other)
  Sender: FDA-Public Use
  Company Number: A0753292A

PATIENT
  Age: 40 Year
  Sex: Female

DRUGS (4)
  1. DARAPRIM [Suspect]
     Indication: TOXOPLASMOSIS
     Route: 048
     Dates: start: 20060501
  2. ZANTAC [Concomitant]
  3. SULFADIAZINE [Concomitant]
  4. FOLIC ACID [Concomitant]

REACTIONS (2)
  - DRUG EXPOSURE DURING PREGNANCY [None]
  - PREMATURE BABY [None]
